FAERS Safety Report 7803254-4 (Version None)
Quarter: 2011Q4

REPORT INFORMATION
  Report Type: 
  Country: None (occurrence: None)
  Receive Date: 20111005
  Receipt Date: 20110928
  Transmission Date: 20120403
  Serious: Yes (Other)
  Sender: FDA-Public Use
  Company Number: 201111173

PATIENT
  Sex: Male

DRUGS (1)
  1. LIORESAL [Suspect]
     Indication: MUSCLE SPASTICITY
     Dosage: 922.4 MCG, DAILY, INTRATHECAL
     Route: 037

REACTIONS (7)
  - CONDITION AGGRAVATED [None]
  - THERAPEUTIC RESPONSE DECREASED [None]
  - MUSCLE SPASTICITY [None]
  - LETHARGY [None]
  - ARACHNOIDITIS [None]
  - MUSCULOSKELETAL STIFFNESS [None]
  - MEDICAL DEVICE ENTRAPMENT [None]
